FAERS Safety Report 7146360-2 (Version None)
Quarter: 2010Q4

REPORT INFORMATION
  Report Type: 
  Country: None (occurrence: None)
  Receive Date: 20101208
  Receipt Date: 20091202
  Transmission Date: 20110411
  Serious: No
  Sender: FDA-Public Use
  Company Number: US-BRISTOL-MYERS SQUIBB COMPANY-14857205

PATIENT
  Age: 66 Year
  Sex: Female
  Weight: 73 kg

DRUGS (2)
  1. PRAVACHOL [Suspect]
     Indication: BLOOD CHOLESTEROL INCREASED
     Dosage: DURATION OF THERAPY: APPROX FOUR YEARS AGO.
  2. VITAMIN B-12 [Concomitant]

REACTIONS (1)
  - DYSGEUSIA [None]
